FAERS Safety Report 7092462-9 (Version None)
Quarter: 2010Q4

REPORT INFORMATION
  Report Type: 
  Country: None (occurrence: None)
  Receive Date: 20101108
  Receipt Date: 20101108
  Transmission Date: 20110411
  Serious: No
  Sender: FDA-Public Use
  Company Number: None

PATIENT
  Sex: Female
  Weight: 64.8644 kg

DRUGS (1)
  1. HYZAAR [Suspect]
     Indication: HYPERTENSION
     Dosage: 100/12.5 ONE DAILY PO (LONG TERM MED NEW TO ME FOR 2008 I HAD ALREADY BEEN ON MED)
     Route: 048

REACTIONS (2)
  - PRODUCT SUBSTITUTION ISSUE [None]
  - URTICARIA [None]
